FAERS Safety Report 6127934-4 (Version None)
Quarter: 2009Q1

REPORT INFORMATION
  Report Type: 
  Country: None (occurrence: None)
  Receive Date: 20090319
  Receipt Date: 20090305
  Transmission Date: 20090719
  Serious: Yes (Hospitalization)
  Sender: FDA-Public Use
  Company Number: 2009S1003902

PATIENT
  Sex: Female

DRUGS (10)
  1. OMEPRAZOLE [Suspect]
     Indication: DRUG USE FOR UNKNOWN INDICATION
     Dosage: ORAL
     Route: 048
     Dates: start: 20071001, end: 20090115
  2. ADCAL-D3 [Concomitant]
  3. ASPIRIN [Concomitant]
  4. ATENOLOL [Concomitant]
  5. ISOSORBIDE MONONITRATE [Concomitant]
  6. METFORMIN HCL [Concomitant]
  7. NITRAZEPAM [Concomitant]
  8. OXYBUTYNIN CHLORIDE [Concomitant]
  9. SIMVASTATIN [Concomitant]
  10. SANDO K [Concomitant]

REACTIONS (2)
  - HYPOKALAEMIA [None]
  - HYPOMAGNESAEMIA [None]
